FAERS Safety Report 5985161-5 (Version None)
Quarter: 2008Q4

REPORT INFORMATION
  Report Type: 
  Country: None (occurrence: None)
  Receive Date: 20081203
  Receipt Date: 20081119
  Transmission Date: 20090506
  Serious: Yes (Other)
  Sender: FDA-Public Use
  Company Number: ALL1-2008-03373

PATIENT
  Age: 20 Year
  Sex: Female
  Weight: 71.2 kg

DRUGS (4)
  1. DAYTRANA [Suspect]
     Indication: ATTENTION DEFICIT/HYPERACTIVITY DISORDER
     Dosage: 30 MG, 1X.DAY:QD, TRANSDERMAL
     Route: 062
     Dates: start: 20081110
  2. TRAZODONE HCL [Concomitant]
  3. KLONOPIN [Concomitant]
  4. XANAX [Concomitant]

REACTIONS (6)
  - APPLICATION SITE EROSION [None]
  - APPLICATION SITE ERYTHEMA [None]
  - APPLICATION SITE PAIN [None]
  - APPLICATION SITE SWELLING [None]
  - OFF LABEL USE [None]
  - UMBILICAL HERNIA [None]
